FAERS Safety Report 12856151 (Version 1)
Quarter: 2016Q4

REPORT INFORMATION
  Report Type: Spontaneous
  Country: US (occurrence: US)
  Receive Date: 20161017
  Receipt Date: 20161017
  Transmission Date: 20170207
  Serious: Yes (Disabling)
  Sender: FDA-Public Use
  Company Number: None

PATIENT
  Age: 59 Year
  Sex: Female
  Weight: 105.75 kg

DRUGS (7)
  1. LEVOFLOXIN [Suspect]
     Active Substance: LEVOFLOXACIN
     Indication: SINUSITIS
     Route: 048
     Dates: start: 20160609, end: 20160618
  2. FLONASE [Concomitant]
     Active Substance: FLUTICASONE PROPIONATE
  3. VITAMIN B-COMPLEX [Concomitant]
     Active Substance: DEXPANTHENOL\NIACINAMIDE\PYRIDOXINE HYDROCHLORIDE\RIBOFLAVIN 5^-PHOSPHATE SODIUM\THIAMINE HYDROCHLORIDE
  4. NAPROXEN AND LIDOCAINE PATCHES [Concomitant]
  5. VITAMIN D [Concomitant]
     Active Substance: CHOLECALCIFEROL
  6. VITAMIN C [Concomitant]
     Active Substance: ASCORBIC ACID
  7. MILK THISTLE [Concomitant]
     Active Substance: MILK THISTLE

REACTIONS (5)
  - Retinal tear [None]
  - Tendon rupture [None]
  - Heart rate irregular [None]
  - Osteonecrosis [None]
  - Hysterectomy [None]

NARRATIVE: CASE EVENT DATE: 20160622
